FAERS Safety Report 6878930-0 (Version None)
Quarter: 2010Q3

REPORT INFORMATION
  Report Type: 
  Country: None (occurrence: None)
  Receive Date: 20100728
  Receipt Date: 20100716
  Transmission Date: 20110219
  Serious: Yes (Death, Life-Threatening, Hospitalization, Other)
  Sender: FDA-Public Use
  Company Number: DE-BAYER-200831838GPV

PATIENT
  Age: 41 Year
  Sex: Male

DRUGS (12)
  1. ALEMTUZUMAB [Suspect]
     Indication: CHRONIC LYMPHOCYTIC LEUKAEMIA RECURRENT
     Dosage: DOSE ESCALATION DAY 1:3 MG - DAY 2: 10MG - DAY 3: 30 MG
     Route: 058
     Dates: start: 20080623, end: 20080625
  2. ALEMTUZUMAB [Suspect]
     Route: 058
     Dates: start: 20080806, end: 20080808
  3. ALEMTUZUMAB [Suspect]
     Route: 058
     Dates: start: 20080903, end: 20080905
  4. FLUDARABINE PHOSPHATE [Suspect]
     Indication: CHRONIC LYMPHOCYTIC LEUKAEMIA RECURRENT
     Route: 042
     Dates: start: 20080806, end: 20080808
  5. FLUDARABINE PHOSPHATE [Suspect]
     Route: 042
     Dates: start: 20080623, end: 20080625
  6. FLUDARABINE PHOSPHATE [Suspect]
     Route: 042
     Dates: start: 20080903, end: 20080905
  7. CYCLOPHOSPHAMIDE [Suspect]
     Indication: CHRONIC LYMPHOCYTIC LEUKAEMIA RECURRENT
     Route: 042
     Dates: start: 20080903, end: 20080905
  8. CYCLOPHOSPHAMIDE [Suspect]
     Route: 042
     Dates: start: 20080806, end: 20080808
  9. CYCLOPHOSPHAMIDE [Suspect]
     Route: 042
     Dates: start: 20080623, end: 20080625
  10. COTRIM [Concomitant]
     Indication: SEPSIS
     Route: 055
     Dates: start: 20080705
  11. PENTAMIDINE ISETHIONATE [Concomitant]
     Route: 055
     Dates: start: 20080705
  12. VALCYTE [Concomitant]
     Indication: CYTOMEGALOVIRUS INFECTION
     Dosage: TOTAL DAILY DOSE: 1800 MG
     Route: 048
     Dates: start: 20081008

REACTIONS (20)
  - CIRCULATORY COLLAPSE [None]
  - COAGULOPATHY [None]
  - CONVULSION [None]
  - DISSEMINATED CYTOMEGALOVIRAL INFECTION [None]
  - ENCEPHALITIS [None]
  - HEPATIC FAILURE [None]
  - HEPATITIS [None]
  - HERPES SIMPLEX [None]
  - INFLUENZA LIKE ILLNESS [None]
  - LEUKOPENIA [None]
  - MULTI-ORGAN FAILURE [None]
  - MUSCULOSKELETAL DISCOMFORT [None]
  - NEUTROPENIA [None]
  - PNEUMONIA [None]
  - PYREXIA [None]
  - QUADRIPARESIS [None]
  - RENAL FAILURE [None]
  - RESPIRATORY FAILURE [None]
  - SEPSIS [None]
  - SEPTIC SHOCK [None]
